FAERS Safety Report 5341579-5 (Version None)
Quarter: 2007Q2

REPORT INFORMATION
  Report Type: 
  Country: None (occurrence: None)
  Receive Date: 20070601
  Receipt Date: 20070522
  Transmission Date: 20071010
  Serious: Yes (Other)
  Sender: FDA-Public Use
  Company Number: HQWYE351723JUN06

PATIENT
  Sex: Female
  Weight: 60.38 kg

DRUGS (4)
  1. EFFEXOR XR [Suspect]
     Indication: DEPRESSION
     Route: 048
     Dates: start: 20051001, end: 20060501
  2. EFFEXOR XR [Suspect]
     Route: 048
     Dates: start: 20060501, end: 20060101
  3. EFFEXOR XR [Suspect]
     Route: 048
     Dates: start: 20060101, end: 20060101
  4. LORAZEPAM [Concomitant]
     Dosage: 10 MG FREQUENCY UNSPECIFIED
     Dates: start: 19960101

REACTIONS (9)
  - CONSTIPATION [None]
  - DRUG WITHDRAWAL SYNDROME [None]
  - EYE OEDEMA [None]
  - FACE OEDEMA [None]
  - LARYNGEAL OEDEMA [None]
  - LIP OEDEMA [None]
  - OEDEMA MOUTH [None]
  - RASH PAPULAR [None]
  - URTICARIA [None]
